FAERS Safety Report 9619491 (Version 2)
Quarter: 2013Q4

REPORT INFORMATION
  Report Type: Spontaneous
  Country: US (occurrence: US)
  Receive Date: 20131014
  Receipt Date: 20131105
  Transmission Date: 20140711
  Serious: Yes (Death)
  Sender: FDA-Public Use
  Company Number: US-CELGENEUS-163-21880-13101379

PATIENT
  Sex: Female
  Weight: 41.7 kg

DRUGS (6)
  1. REVLIMID [Suspect]
     Indication: AMYLOIDOSIS
     Dosage: 15 MILLIGRAM
     Route: 048
     Dates: start: 20130717, end: 20130915
  2. OFLOXACIN [Concomitant]
     Indication: INFECTION
     Dosage: 2 GRAM
     Route: 065
     Dates: start: 20130915
  3. HEPARIN [Concomitant]
     Indication: THROMBOSIS
     Route: 041
     Dates: start: 20130915
  4. LEVOPHED [Concomitant]
     Indication: HYPOTENSION
     Route: 041
     Dates: start: 20130915
  5. FILGRASTIM [Concomitant]
     Indication: NEUTROPENIA
     Route: 065
     Dates: start: 20130915
  6. LINEZOLID [Concomitant]
     Indication: INFECTION
     Route: 065
     Dates: start: 20130915

REACTIONS (3)
  - Cardiac arrest [Fatal]
  - Amyloidosis [Fatal]
  - Septic shock [Fatal]
